FAERS Safety Report 8134274-0 (Version None)
Quarter: 2012Q1

REPORT INFORMATION
  Report Type: 
  Country: None (occurrence: None)
  Receive Date: 20120208
  Receipt Date: 20120124
  Transmission Date: 20120608
  Serious: Yes (Other)
  Sender: FDA-Public Use
  Company Number: CLOZ20120003

PATIENT
  Age: 36 Year
  Sex: Male

DRUGS (12)
  1. CHLORAMPHENICOL [Suspect]
     Indication: PRODUCT USED FOR UNKNOWN INDICATION
  2. VANCOMYCIN [Suspect]
     Indication: PRODUCT USED FOR UNKNOWN INDICATION
  3. MEROPENEM [Suspect]
     Indication: PRODUCT USED FOR UNKNOWN INDICATION
  4. CLONAZEPAM [Suspect]
     Indication: PRODUCT USED FOR UNKNOWN INDICATION
  5. HYDROCHLOROTHIAZIDE [Suspect]
     Indication: PRODUCT USED FOR UNKNOWN INDICATION
  6. CLINDAMYCIN [Suspect]
     Indication: PRODUCT USED FOR UNKNOWN INDICATION
  7. METRONIDAZOLE [Suspect]
     Indication: PRODUCT USED FOR UNKNOWN INDICATION
  8. TIZANIDINE HCL [Suspect]
     Indication: PRODUCT USED FOR UNKNOWN INDICATION
  9. CEFTRIAXONE [Suspect]
     Indication: PRODUCT USED FOR UNKNOWN INDICATION
  10. IMIPENEM (IMIPENEM) (UNKNOWN) [Suspect]
     Indication: PRODUCT USED FOR UNKNOWN INDICATION
  11. HERBAL MEDICINE (VITAMINS NOS, MINERALS NOS, HERBAL NOS) (UNKOWN) [Suspect]
     Indication: PRODUCT USED FOR UNKNOWN INDICATION
  12. CIPROFLOXACIN [Suspect]
     Indication: PRODUCT USED FOR UNKNOWN INDICATION

REACTIONS (1)
  - LIVER INJURY [None]
